FAERS Safety Report 6644091-6 (Version None)
Quarter: 2010Q1

REPORT INFORMATION
  Report Type: 
  Country: None (occurrence: None)
  Receive Date: 20100322
  Receipt Date: 20100309
  Transmission Date: 20100710
  Serious: Yes (Hospitalization)
  Sender: FDA-Public Use
  Company Number: PHEH2010US03125

PATIENT
  Sex: Male

DRUGS (5)
  1. EXJADE [Suspect]
     Indication: LYMPHATIC DISORDER
     Dosage: 1250 MG, DAILY
     Route: 048
  2. FLOMAX [Concomitant]
  3. LEXAPRO [Concomitant]
  4. XANAX [Concomitant]
  5. TRAZODONE HCL [Concomitant]

REACTIONS (2)
  - FEBRILE NEUTROPENIA [None]
  - PANCYTOPENIA [None]
